FAERS Safety Report 7968983-0 (Version None)
Quarter: 2011Q4

REPORT INFORMATION
  Report Type: 
  Country: None (occurrence: None)
  Receive Date: 20111209
  Receipt Date: 20111129
  Transmission Date: 20120403
  Serious: Yes (Other)
  Sender: FDA-Public Use
  Company Number: US-JNJFOC-20111202682

PATIENT
  Sex: Female
  Weight: 127.01 kg

DRUGS (6)
  1. BLOOD PRESSURE MEDICATION NOS [Concomitant]
     Indication: HYPERTENSION
  2. REMICADE [Suspect]
     Route: 042
  3. NEXIUM [Concomitant]
     Indication: GASTROOESOPHAGEAL REFLUX DISEASE
     Route: 048
  4. REMICADE [Suspect]
     Indication: PSORIATIC ARTHROPATHY
     Route: 042
  5. LEXAPRO [Concomitant]
     Indication: DEPRESSION
  6. SIMPONI [Suspect]
     Indication: PSORIATIC ARTHROPATHY
     Route: 058

REACTIONS (6)
  - EXOSTOSIS [None]
  - HYPOKINESIA [None]
  - PAIN IN EXTREMITY [None]
  - DRUG SPECIFIC ANTIBODY PRESENT [None]
  - PSORIATIC ARTHROPATHY [None]
  - IMPAIRED HEALING [None]
